FAERS Safety Report 5356981-5 (Version None)
Quarter: 2007Q2

REPORT INFORMATION
  Report Type: 
  Country: None (occurrence: None)
  Receive Date: 20070612
  Receipt Date: 20070612
  Transmission Date: 20071010
  Serious: Yes (Life-Threatening, Hospitalization, Disabling, Other)
  Sender: FDA-Public Use
  Company Number: None

PATIENT
  Sex: Male
  Weight: 74.3899 kg

DRUGS (1)
  1. BACLOPHEN [Suspect]

REACTIONS (11)
  - ABSCESS [None]
  - BACK PAIN [None]
  - CATHETER RELATED COMPLICATION [None]
  - DEVICE BREAKAGE [None]
  - DEVICE MIGRATION [None]
  - DRUG WITHDRAWAL SYNDROME [None]
  - FALL [None]
  - FLUID RETENTION [None]
  - INJURY [None]
  - MUSCLE SPASTICITY [None]
  - SOFT TISSUE DISORDER [None]
